FAERS Safety Report 4835536-2 (Version None)
Quarter: 2005Q4

REPORT INFORMATION
  Report Type: 
  Country: None (occurrence: None)
  Receive Date: 20051121
  Receipt Date: 20051024
  Transmission Date: 20060501
  Serious: No
  Sender: FDA-Public Use
  Company Number: 2005BH000252

PATIENT
  Age: 49 Year
  Sex: Male

DRUGS (1)
  1. LACTATED RINGER'S IN PLASTIC CONTAINER [Suspect]

REACTIONS (3)
  - INFUSION RELATED REACTION [None]
  - PHLEBITIS [None]
  - PRURITUS [None]
